FAERS Safety Report 7460916-9 (Version None)
Quarter: 2011Q2

REPORT INFORMATION
  Report Type: 
  Country: None (occurrence: None)
  Receive Date: 20110505
  Receipt Date: 20110429
  Transmission Date: 20111010
  Serious: Yes (Other)
  Sender: FDA-Public Use
  Company Number: AU-B.I. PHARMACEUTICALS,INC./RIDGEFIELD-2011-DE-02814GD

PATIENT
  Sex: Male

DRUGS (3)
  1. TENOFOVIR DISOPROXIL FUMARATE [Suspect]
     Indication: HIV INFECTION
  2. NEVIRAPINE [Suspect]
     Indication: HIV INFECTION
  3. ANTIVIRALS FOR TREATMENT OF HIV INFECTIONS, C [Suspect]
     Indication: HIV INFECTION

REACTIONS (1)
  - AIDS ENCEPHALOPATHY [None]
